FAERS Safety Report 13537406 (Version 3)
Quarter: 2017Q2

REPORT INFORMATION
  Report Type: Report from Study
  Country: BR (occurrence: BR)
  Receive Date: 20170511
  Receipt Date: 20170522
  Transmission Date: 20170830
  Serious: Yes (Other)
  Sender: FDA-Public Use
  Company Number: BR-BRISTOL-MYERS SQUIBB COMPANY-BMS-2017-040783

PATIENT
  Age: 19 Year
  Sex: Female
  Weight: 50 kg

DRUGS (3)
  1. FERROUS SULFATE. [Concomitant]
     Active Substance: FERROUS SULFATE
     Indication: SUPPLEMENTATION THERAPY
     Dosage: UNK UNK, QD
     Route: 048
     Dates: end: 20170417
  2. EFAVIRENZ [Suspect]
     Active Substance: EFAVIRENZ
     Indication: HIV INFECTION
     Dosage: 600 MG, QD
     Route: 048
     Dates: start: 20170309
  3. LAMIVUDINE,ZIDOVUDINE [Suspect]
     Active Substance: LAMIVUDINE\ZIDOVUDINE
     Indication: HIV INFECTION
     Dosage: 1 TAB, BID
     Route: 048
     Dates: start: 20170309

REACTIONS (4)
  - Drug dose omission [Unknown]
  - Insomnia [Unknown]
  - Overdose [Unknown]
  - Maternal exposure during pregnancy [Unknown]

NARRATIVE: CASE EVENT DATE: 20170411
